FAERS Safety Report 4847406-4 (Version None)
Quarter: 2005Q4

REPORT INFORMATION
  Report Type: 
  Country: None (occurrence: None)
  Receive Date: 20051205
  Receipt Date: 20051122
  Transmission Date: 20060501
  Serious: Yes (Death, Other)
  Sender: FDA-Public Use
  Company Number: HQWYE702923NOV05

PATIENT
  Sex: Female

DRUGS (4)
  1. PREMPRO [Suspect]
  2. ACTIVELLA [Suspect]
  3. PREMARIN [Suspect]
  4. PROVERA [Suspect]

REACTIONS (1)
  - BREAST CANCER FEMALE [None]
